FAERS Safety Report 18482461 (Version 4)
Quarter: 2021Q2

REPORT INFORMATION
  Report Type: Report from Study
  Country: FR (occurrence: FR)
  Receive Date: 20201110
  Receipt Date: 20210419
  Transmission Date: 20210717
  Serious: Yes (Death, Hospitalization, Other)
  Sender: FDA-Public Use
  Company Number: FR-PFIZER INC-2020428661

PATIENT
  Age: 32 Year
  Sex: Male
  Weight: 89 kg

DRUGS (14)
  1. LOVENOX [Concomitant]
     Active Substance: ENOXAPARIN SODIUM
     Dosage: 4000 IU, 1X/DAY
  2. FLUDARABINE [Concomitant]
     Active Substance: FLUDARABINE PHOSPHATE
     Indication: BONE MARROW CONDITIONING REGIMEN
     Dosage: 300 MG
  3. CYCLOPHOSPHAMIDE. [Concomitant]
     Active Substance: CYCLOPHOSPHAMIDE
     Indication: BONE MARROW CONDITIONING REGIMEN
     Dosage: 6100 MG
  4. ETOPOPHOS [Concomitant]
     Active Substance: ETOPOSIDE PHOSPHATE
     Indication: BONE MARROW CONDITIONING REGIMEN
     Dosage: 60 MG
  5. CICLOSPORIN [Concomitant]
     Active Substance: CYCLOSPORINE
     Dosage: 100 MG
     Dates: start: 20180805, end: 20180806
  6. VFEND [Suspect]
     Active Substance: VORICONAZOLE
     Indication: BRONCHOPULMONARY ASPERGILLOSIS
     Dosage: 500 MG
     Route: 048
     Dates: start: 20150327
  7. DEFITELIO [Suspect]
     Active Substance: DEFIBROTIDE SODIUM
     Indication: PROPHYLAXIS
     Dosage: 25 MG/KG, 1X/DAY
     Route: 042
     Dates: start: 20150115, end: 20150204
  8. FLAGYL [METRONIDAZOLE BENZOATE] [Suspect]
     Active Substance: METRONIDAZOLE BENZOATE
     Indication: ANTIBIOTIC THERAPY
     Dosage: 1500 MG
     Route: 042
     Dates: start: 20150730, end: 20150809
  9. THIOTEPA. [Concomitant]
     Active Substance: THIOTEPA
     Indication: BONE MARROW CONDITIONING REGIMEN
     Dosage: 440 MG
  10. URSODEOXYCHOLIC ACID [Concomitant]
     Active Substance: URSODIOL
     Dosage: UNK
  11. IMMUNOGLOBULINS NOS [Concomitant]
     Active Substance: IMMUNE GLOBULIN NOS
     Indication: HYPOGAMMAGLOBULINAEMIA
     Dosage: 30 G
     Dates: start: 20150804, end: 20150804
  12. BUSULFAN. [Concomitant]
     Active Substance: BUSULFAN
     Indication: BONE MARROW CONDITIONING REGIMEN
     Dosage: 570 MG
  13. CICLOSPORIN [Concomitant]
     Active Substance: CYCLOSPORINE
     Indication: PROPHYLAXIS AGAINST GRAFT VERSUS HOST DISEASE
     Dosage: 120 MG
     Dates: start: 20150727, end: 20150804
  14. TAZOCILLINE [Concomitant]
     Active Substance: PIPERACILLIN SODIUM\TAZOBACTAM SODIUM
     Indication: ANTIBIOTIC THERAPY
     Dosage: UNK
     Dates: start: 20150730, end: 20150809

REACTIONS (7)
  - Oesophagitis [Fatal]
  - Haematemesis [Recovered/Resolved]
  - Acute graft versus host disease [Fatal]
  - Graft versus host disease in gastrointestinal tract [Fatal]
  - Chronic graft versus host disease [Fatal]
  - Viral haemorrhagic cystitis [Fatal]
  - Bronchopulmonary aspergillosis [Fatal]

NARRATIVE: CASE EVENT DATE: 20150203
